FAERS Safety Report 8472961-5 (Version None)
Quarter: 2012Q2

REPORT INFORMATION
  Report Type: 
  Country: None (occurrence: None)
  Receive Date: 20120627
  Receipt Date: 20120118
  Transmission Date: 20120825
  Serious: No
  Sender: FDA-Public Use
  Company Number: US-MYLANLABS-2012S1001070

PATIENT
  Sex: Female
  Weight: 78.47 kg

DRUGS (6)
  1. ATACAND [Concomitant]
  2. VERAPAMIL [Concomitant]
  3. COUMADIN [Concomitant]
  4. HYDROXYCHLOROQUINE SULFATE [Suspect]
     Indication: SYSTEMIC LUPUS ERYTHEMATOSUS
     Route: 048
  5. SYNTHROID [Concomitant]
  6. VENTOLIN [Concomitant]

REACTIONS (2)
  - CHEST PAIN [None]
  - DYSPNOEA [None]
